FAERS Safety Report 16601719 (Version 1)
Quarter: 2019Q3

REPORT INFORMATION
  Report Type: Spontaneous
  Country: FR (occurrence: FR)
  Receive Date: 20190719
  Receipt Date: 20190719
  Transmission Date: 20191004
  Serious: Yes (Hospitalization, Other)
  Sender: FDA-Public Use
  Company Number: FR-BIOVITRUM-2019FR1487

PATIENT
  Age: 34 Year
  Sex: Female

DRUGS (1)
  1. KINERET [Suspect]
     Active Substance: ANAKINRA
     Indication: STILL^S DISEASE
     Route: 058
     Dates: start: 20180109, end: 20180122

REACTIONS (6)
  - Injection site reaction [Recovered/Resolved]
  - Eosinophilia [Recovered/Resolved]
  - Epidermal necrosis [Recovered/Resolved]
  - Skin reaction [Recovered/Resolved]
  - Pyrexia [Recovered/Resolved]
  - Parakeratosis [Recovered/Resolved]

NARRATIVE: CASE EVENT DATE: 20180110
